FAERS Safety Report 21459897 (Version 1)
Quarter: 2022Q4

REPORT INFORMATION
  Report Type: Spontaneous
  Country: None (occurrence: FR)
  Receive Date: 20221014
  Receipt Date: 20221014
  Transmission Date: 20230113
  Serious: Yes (Hospitalization, Other)
  Sender: FDA-Public Use
  Company Number: FR-AFSSAPS-AVTO20220044

PATIENT
  Age: 18 Year
  Sex: Female

DRUGS (1)
  1. NITROUS OXIDE [Suspect]
     Active Substance: NITROUS OXIDE
     Indication: Product used for unknown indication
     Route: 055

REACTIONS (2)
  - Quadriparesis [Recovered/Resolved with Sequelae]
  - Vitamin B12 deficiency [Recovered/Resolved with Sequelae]

NARRATIVE: CASE EVENT DATE: 20211201
